FAERS Safety Report 5195331-4 (Version None)
Quarter: 2006Q4

REPORT INFORMATION
  Report Type: 
  Country: None (occurrence: None)
  Receive Date: 20061229
  Receipt Date: 20061219
  Transmission Date: 20070319
  Serious: Yes (Life-Threatening)
  Sender: FDA-Public Use
  Company Number: US-PFIZER INC-2006154819

PATIENT
  Sex: Male

DRUGS (2)
  1. MYCOBUTIN [Suspect]
     Indication: HEPATITIS C
     Dosage: DAILY DOSE:200MG
     Route: 048
  2. PEGINTERFERON ALFA-2B [Suspect]
     Indication: HEPATITIS B

REACTIONS (7)
  - FEELING ABNORMAL [None]
  - IMMUNE SYSTEM DISORDER [None]
  - INCORRECT DOSE ADMINISTERED [None]
  - INFECTION [None]
  - MEDICATION ERROR [None]
  - RENAL DISORDER [None]
  - SUICIDAL IDEATION [None]
